FAERS Safety Report 9702264 (Version 2)
Quarter: 2013Q4

REPORT INFORMATION
  Report Type: Spontaneous
  Country: US (occurrence: None)
  Receive Date: 20131119
  Receipt Date: 20131129
  Transmission Date: 20140711
  Serious: Yes (Other)
  Sender: FDA-Public Use
  Company Number: AUR-APL-2013-09419

PATIENT
  Age: 51 Year
  Sex: Female

DRUGS (4)
  1. CEFDINIR [Suspect]
     Indication: PRODUCT USED FOR UNKNOWN INDICATION
  2. CLINDAMYCIN (CLINDAMYCIN) [Suspect]
     Indication: PRODUCT USED FOR UNKNOWN INDICATION
  3. CEFUROXIME [Suspect]
     Indication: PRODUCT USED FOR UNKNOWN INDICATION
  4. AUGMENTIN [Suspect]
     Indication: PRODUCT USED FOR UNKNOWN INDICATION

REACTIONS (2)
  - Colitis [None]
  - Condition aggravated [None]
